FAERS Safety Report 8071397-9 (Version None)
Quarter: 2012Q1

REPORT INFORMATION
  Report Type: 
  Country: None (occurrence: None)
  Receive Date: 20120125
  Receipt Date: 20120118
  Transmission Date: 20120608
  Serious: Yes (Other)
  Sender: FDA-Public Use
  Company Number: FR-PFIZER INC-K201100179

PATIENT
  Age: 38 Year
  Sex: Female
  Weight: 72 kg

DRUGS (6)
  1. RAMIPRIL [Suspect]
     Indication: NEPHROPATHY
     Dosage: 2.5 MG, 1X/DAY
     Route: 048
     Dates: start: 20101006
  2. COZAAR [Concomitant]
     Dosage: 50 MG, 1X/DAY
  3. METFORMIN [Concomitant]
     Dosage: 850 MG, 2X/DAY
  4. ROSUVASTATIN [Concomitant]
     Dosage: 5 MG, 1X/DAY
  5. LANTUS [Interacting]
     Indication: TYPE 1 DIABETES MELLITUS
     Dosage: 26 IU, UNK
     Route: 058
  6. APIDRA [Interacting]
     Indication: DIABETES MELLITUS
     Dosage: 20 IU, 3X/DAY

REACTIONS (3)
  - DRUG INTERACTION [None]
  - HYPOGLYCAEMIA [None]
  - SHOCK HYPOGLYCAEMIC [None]
